FAERS Safety Report 16400492 (Version 1)
Quarter: 2019Q2

REPORT INFORMATION
  Report Type: Spontaneous
  Country: US (occurrence: US)
  Receive Date: 20190606
  Receipt Date: 20190606
  Transmission Date: 20190711
  Serious: Yes (Hospitalization)
  Sender: FDA-Public Use
  Company Number: US-JNJFOC-20190602843

PATIENT
  Age: 51 Year
  Sex: Male

DRUGS (1)
  1. INVOKANA [Suspect]
     Active Substance: CANAGLIFLOZIN
     Indication: PRODUCT USED FOR UNKNOWN INDICATION
     Route: 048

REACTIONS (7)
  - Toe amputation [Unknown]
  - Impaired healing [Unknown]
  - Cellulitis [Unknown]
  - Osteomyelitis [Unknown]
  - Diabetic foot infection [Unknown]
  - Gangrene [Recovered/Resolved]
  - Necrosis ischaemic [Unknown]

NARRATIVE: CASE EVENT DATE: 20150106
